FAERS Safety Report 4871635-7 (Version None)
Quarter: 2006Q1

REPORT INFORMATION
  Report Type: 
  Country: None (occurrence: None)
  Receive Date: 20060104
  Receipt Date: 20051222
  Transmission Date: 20060701
  Serious: Yes (Death)
  Sender: FDA-Public Use
  Company Number: PHEH2005US13789

PATIENT

DRUGS (2)
  1. CLOZARIL [Suspect]
     Dosage: UNK, UNK
  2. ABILIFY [Suspect]

REACTIONS (3)
  - COMPLETED SUICIDE [None]
  - DRUG INEFFECTIVE [None]
  - SOMNOLENCE [None]
